FAERS Safety Report 4573653-5 (Version None)
Quarter: 2005Q1

REPORT INFORMATION
  Report Type: 
  Country: None (occurrence: None)
  Receive Date: 20050203
  Receipt Date: 20050121
  Transmission Date: 20050727
  Serious: Yes (Hospitalization)
  Sender: FDA-Public Use
  Company Number: VIS10182.2005

PATIENT
  Age: 50 Year
  Sex: Male

DRUGS (3)
  1. VISICOL [Suspect]
     Indication: COLONOSCOPY
     Dosage: 42 G ONCE PO
     Route: 048
     Dates: start: 20041216, end: 20041217
  2. COLONOSCOPY CLEANSING DETERGENT [Suspect]
  3. PROTONIX [Concomitant]

REACTIONS (4)
  - ABDOMINAL PAIN [None]
  - COLITIS [None]
  - DIARRHOEA HAEMORRHAGIC [None]
  - POST PROCEDURAL COMPLICATION [None]
